FAERS Safety Report 10013445 (Version 1)
Quarter: 2014Q1

REPORT INFORMATION
  Report Type: Spontaneous
  Country: US (occurrence: US)
  Receive Date: 20140314
  Receipt Date: 20140314
  Transmission Date: 20141002
  Serious: Yes (Hospitalization)
  Sender: FDA-Public Use
  Company Number: US-B.I. PHARMACEUTICALS,INC./RIDGEFIELD-2014-BI-10650BP

PATIENT
  Sex: Male

DRUGS (1)
  1. COMBIVENT [Suspect]
     Indication: NASAL CONGESTION
     Dosage: STRENGTH: 18 MCG / 103 MCG
     Route: 055
     Dates: end: 201312

REACTIONS (2)
  - Coronary artery occlusion [Recovered/Resolved]
  - Off label use [Unknown]
